FAERS Safety Report 5404082-X (Version None)
Quarter: 2007Q3

REPORT INFORMATION
  Report Type: 
  Country: None (occurrence: None)
  Receive Date: 20070731
  Receipt Date: 20070718
  Transmission Date: 20080115
  Serious: Yes (Hospitalization)
  Sender: FDA-Public Use
  Company Number: ABAZS-07-0636

PATIENT
  Age: 68 Year
  Sex: Female

DRUGS (2)
  1. ABRAXANE [Suspect]
     Indication: BREAST CANCER METASTATIC
     Dosage: (100 MG/M2, WEEKLY)
     Dates: start: 20070201
  2. CAMPTOSAR [Concomitant]

REACTIONS (3)
  - MALIGNANT NEOPLASM PROGRESSION [None]
  - OEDEMA [None]
  - PLEURAL EFFUSION [None]
